FAERS Safety Report 8617154 (Version 2)
Quarter: 2012Q4

REPORT INFORMATION
  Report Type: 
  Country: BR (occurrence: BR)
  Receive Date: 20120615
  Receipt Date: 20121102
  Transmission Date: 20130627
  Serious: Yes (Other)
  Sender: FDA-Public Use
  Company Number: BR-PFIZER INC-2012140980

PATIENT
  Age: 62 Year
  Sex: Male
  Weight: 91 kg

DRUGS (2)
  1. SUTENT [Suspect]
     Indication: RENAL CANCER
     Dosage: 50 mg, 1x/day (3 cycles)
     Route: 048
     Dates: start: 20120525, end: 20121019
  2. PURAN T4 [Concomitant]
     Dosage: 50 mg, 1 tablet (frequency unspecified)

REACTIONS (6)
  - Immunodeficiency [Unknown]
  - Neutrophil count decreased [Not Recovered/Not Resolved]
  - Hypertension [Recovered/Resolved]
  - Pharyngitis [Not Recovered/Not Resolved]
  - Ageusia [Unknown]
  - Skin depigmentation [Unknown]
